FAERS Safety Report 19978584 (Version 1)
Quarter: 2021Q4

REPORT INFORMATION
  Report Type: Spontaneous
  Country: US (occurrence: US)
  Receive Date: 20211021
  Receipt Date: 20211021
  Transmission Date: 20220303
  Serious: No
  Sender: FDA-Public Use
  Company Number: None

PATIENT
  Sex: Male

DRUGS (1)
  1. ENBREL [Suspect]
     Active Substance: ETANERCEPT
     Indication: Rheumatoid arthritis
     Route: 030
     Dates: start: 20210430, end: 20211015

REACTIONS (8)
  - Joint swelling [None]
  - Arthralgia [None]
  - Pain [None]
  - Inflammatory marker increased [None]
  - Drug ineffective [None]
  - Pain in extremity [None]
  - Arthralgia [None]
  - Arthralgia [None]
